FAERS Safety Report 7690678-1 (Version None)
Quarter: 2011Q3

REPORT INFORMATION
  Report Type: 
  Country: None (occurrence: None)
  Receive Date: 20110818
  Receipt Date: 20110811
  Transmission Date: 20111222
  Serious: Yes (Life-Threatening, Other)
  Sender: FDA-Public Use
  Company Number: JP-PFIZER INC-2011155842

PATIENT
  Age: 54 Year
  Sex: Male

DRUGS (6)
  1. AMLODIPINE [Suspect]
     Indication: HYPERTENSION
     Dosage: UNK
     Route: 048
     Dates: start: 20090501, end: 20090723
  2. LANSOPRAZOLE [Suspect]
     Indication: GASTROOESOPHAGEAL REFLUX DISEASE
     Dosage: 15 MG, 1X/DAY
     Route: 048
     Dates: start: 20110111
  3. NORVASC [Concomitant]
     Indication: HYPERTENSION
     Dosage: 5 MG, 1X/DAY
     Route: 048
     Dates: start: 20090724
  4. LANSOPRAZOLE [Suspect]
     Indication: GASTROOESOPHAGEAL REFLUX DISEASE
     Dosage: 15 MG, 1X/DAY
     Route: 048
     Dates: start: 20060101, end: 20110110
  5. CIMETIDINE [Suspect]
     Dosage: UNK
     Dates: start: 20110708
  6. CANDESARTAN CILEXETIL [Concomitant]
     Indication: HYPERTENSION
     Dosage: 4 MG, 1X/DAY
     Route: 048
     Dates: start: 20100601

REACTIONS (14)
  - TETANY [None]
  - HYPOCALCAEMIA [None]
  - HYPERTENSION [None]
  - OCCULT BLOOD [None]
  - HYPOPHOSPHATAEMIA [None]
  - LIVER DISORDER [None]
  - EPISTAXIS [None]
  - DYSPEPSIA [None]
  - HYPOKALAEMIA [None]
  - RENAL TUBULAR DISORDER [None]
  - PROTEINURIA [None]
  - CRYSTAL URINE PRESENT [None]
  - HYPERVENTILATION [None]
  - SEASONAL ALLERGY [None]
